FAERS Safety Report 9835324 (Version 2)
Quarter: 2014Q2

REPORT INFORMATION
  Report Type: Spontaneous
  Country: US (occurrence: US)
  Receive Date: 20140122
  Receipt Date: 20140424
  Transmission Date: 20141212
  Serious: No
  Sender: FDA-Public Use
  Company Number: US-BRISTOL-MYERS SQUIBB COMPANY-19930015

PATIENT
  Age: 85 Year
  Sex: Female
  Weight: 77.1 kg

DRUGS (1)
  1. ELIQUIS [Suspect]
     Route: 048
     Dates: start: 20131212, end: 201312

REACTIONS (2)
  - Pruritus [Unknown]
  - Swelling face [Unknown]
